FAERS Safety Report 9045862 (Version 1)
Quarter: 2013Q1

REPORT INFORMATION
  Report Type: Spontaneous
  Country: US (occurrence: US)
  Receive Date: 20130201
  Receipt Date: 20130201
  Transmission Date: 20140127
  Serious: Yes (Hospitalization)
  Sender: FDA-Public Use
  Company Number: US-ABBOTT-12P-163-1023383-00

PATIENT
  Sex: Male
  Weight: 86.26 kg

DRUGS (5)
  1. HUMIRA [Suspect]
     Indication: COLITIS ULCERATIVE
     Dates: start: 201210
  2. HUMIRA [Suspect]
     Dates: start: 201209, end: 201209
  3. HUMIRA [Suspect]
     Dates: start: 20120913, end: 20120913
  4. IMURAN [Concomitant]
     Indication: COLITIS ULCERATIVE
  5. ASACOL [Concomitant]
     Indication: COLITIS ULCERATIVE

REACTIONS (2)
  - Thrombosis [Recovered/Resolved]
  - Oedema peripheral [Recovered/Resolved]
